FAERS Safety Report 4608460-8 (Version None)
Quarter: 2005Q1

REPORT INFORMATION
  Report Type: 
  Country: None (occurrence: None)
  Receive Date: 20050311
  Receipt Date: 20050311
  Transmission Date: 20050727
  Serious: Yes (Death)
  Sender: FDA-Public Use
  Company Number: None

PATIENT
  Sex: Female
  Weight: 113.3993 kg

DRUGS (1)
  1. CHLORHEXIDINE GLUCONATE [Suspect]

REACTIONS (4)
  - MEDICATION ERROR [None]
  - NECROSIS [None]
  - RENAL FAILURE [None]
  - RESPIRATORY FAILURE [None]
